FAERS Safety Report 7233503-5 (Version None)
Quarter: 2011Q1

REPORT INFORMATION
  Report Type: 
  Country: None (occurrence: None)
  Receive Date: 20110110
  Receipt Date: 20101206
  Transmission Date: 20110831
  Serious: Yes (Other)
  Sender: FDA-Public Use
  Company Number: ACO_20813_2010

PATIENT
  Age: 43 Year
  Sex: Female
  Weight: 49 kg

DRUGS (12)
  1. AMPYRA [Suspect]
     Indication: GAIT DISTURBANCE
     Dosage: 10 MG, BID, ORAL ; 10 MG, QD, ORAL ; 10 MG, BID, ORAL
     Route: 048
     Dates: start: 20101013, end: 20101020
  2. AMPYRA [Suspect]
     Indication: HEADACHE
     Dosage: 10 MG, BID, ORAL ; 10 MG, QD, ORAL ; 10 MG, BID, ORAL
     Route: 048
     Dates: start: 20101013, end: 20101020
  3. AMPYRA [Suspect]
     Indication: GAIT DISTURBANCE
     Dosage: 10 MG, BID, ORAL ; 10 MG, QD, ORAL ; 10 MG, BID, ORAL
     Route: 048
     Dates: start: 20101004, end: 20101013
  4. AMPYRA [Suspect]
     Indication: HEADACHE
     Dosage: 10 MG, BID, ORAL ; 10 MG, QD, ORAL ; 10 MG, BID, ORAL
     Route: 048
     Dates: start: 20101004, end: 20101013
  5. AMPYRA [Suspect]
     Indication: GAIT DISTURBANCE
     Dosage: 10 MG, BID, ORAL ; 10 MG, QD, ORAL ; 10 MG, BID, ORAL
     Route: 048
     Dates: start: 20101020
  6. AMPYRA [Suspect]
     Indication: HEADACHE
     Dosage: 10 MG, BID, ORAL ; 10 MG, QD, ORAL ; 10 MG, BID, ORAL
     Route: 048
     Dates: start: 20101020
  7. LYRICA [Concomitant]
  8. COPAXONE [Concomitant]
  9. CARBAMAZEPINE [Concomitant]
  10. ZOLPIDEM [Concomitant]
  11. CYMBALTA [Concomitant]
  12. ARICEPT [Concomitant]

REACTIONS (8)
  - DIZZINESS [None]
  - MULTIPLE SCLEROSIS RELAPSE [None]
  - OFF LABEL USE [None]
  - VISUAL IMPAIRMENT [None]
  - PARAESTHESIA [None]
  - INAPPROPRIATE SCHEDULE OF DRUG ADMINISTRATION [None]
  - INFLUENZA LIKE ILLNESS [None]
  - INSOMNIA [None]
